FAERS Safety Report 9038563 (Version 1)
Quarter: 2013Q1

REPORT INFORMATION
  Report Type: Spontaneous
  Country: FR (occurrence: FR)
  Receive Date: 20130129
  Receipt Date: 20130129
  Transmission Date: 20140127
  Serious: Yes (Other)
  Sender: FDA-Public Use
  Company Number: FR-MYLANLABS-2013S1001143

PATIENT
  Age: 69 Year
  Sex: Male

DRUGS (11)
  1. ETOPOSIDE [Suspect]
     Indication: SMALL CELL LUNG CANCER
     Route: 042
     Dates: start: 20121112, end: 20121113
  2. CARBOPLATIN [Suspect]
     Indication: SMALL CELL LUNG CANCER
     Route: 042
     Dates: start: 20121112, end: 20121112
  3. OXYCONTIN [Concomitant]
     Indication: PRODUCT USED FOR UNKNOWN INDICATION
  4. DEBRIDAT [Concomitant]
     Indication: PRODUCT USED FOR UNKNOWN INDICATION
  5. LYRICA [Concomitant]
     Indication: PRODUCT USED FOR UNKNOWN INDICATION
  6. SERESTA [Concomitant]
     Indication: PRODUCT USED FOR UNKNOWN INDICATION
  7. SOLUMEDROL [Concomitant]
     Indication: PRODUCT USED FOR UNKNOWN INDICATION
  8. PARACETAMOL [Concomitant]
     Indication: PRODUCT USED FOR UNKNOWN INDICATION
  9. STILNOX [Concomitant]
     Indication: PRODUCT USED FOR UNKNOWN INDICATION
  10. MECIR [Concomitant]
     Indication: PRODUCT USED FOR UNKNOWN INDICATION
  11. EMEND /01627301/ [Concomitant]
     Indication: PREMEDICATION

REACTIONS (7)
  - Encephalopathy [Recovered/Resolved]
  - Nervous system disorder [None]
  - Coma [None]
  - Visual impairment [None]
  - Dyspnoea [None]
  - Bradypnoea [None]
  - Oxygen saturation decreased [None]
